FAERS Safety Report 14528399 (Version 2)
Quarter: 2018Q2

REPORT INFORMATION
  Report Type: Spontaneous
  Country: FR (occurrence: FR)
  Receive Date: 20180214
  Receipt Date: 20180503
  Transmission Date: 20180711
  Serious: Yes (Life-Threatening)
  Sender: FDA-Public Use
  Company Number: FR-ASTRAZENECA-2018SE17348

PATIENT
  Age: 74 Year
  Sex: Male
  Weight: 49.1 kg

DRUGS (8)
  1. MOPRAL [Suspect]
     Active Substance: OMEPRAZOLE
     Indication: GASTRODUODENAL ULCER
     Route: 048
     Dates: end: 20180110
  2. IPRATROPIUM BROMIDE. [Concomitant]
     Active Substance: IPRATROPIUM BROMIDE
  3. BISOPROLOL [Concomitant]
     Active Substance: BISOPROLOL
  4. TAHOR [Concomitant]
     Active Substance: ATORVASTATIN CALCIUM
  5. METFORMIN [Concomitant]
     Active Substance: METFORMIN HYDROCHLORIDE
  6. DUOPLAVIN [Concomitant]
     Active Substance: ASPIRIN\CLOPIDOGREL
  7. BRICANYL [Concomitant]
     Active Substance: TERBUTALINE SULFATE
  8. XATRAL [Concomitant]
     Active Substance: ALFUZOSIN

REACTIONS (4)
  - Seizure [Recovered/Resolved]
  - Encephalopathy [Recovered/Resolved]
  - Hypocalcaemia [Recovered/Resolved]
  - Hypomagnesaemia [Recovering/Resolving]

NARRATIVE: CASE EVENT DATE: 201712
